FAERS Safety Report 5595315-8 (Version None)
Quarter: 2008Q1

REPORT INFORMATION
  Report Type: 
  Country: None (occurrence: None)
  Receive Date: 20080117
  Receipt Date: 20080114
  Transmission Date: 20080703
  Serious: Yes (Other)
  Sender: FDA-Public Use
  Company Number: US-GENENTECH-253090

PATIENT
  Sex: Male

DRUGS (6)
  1. BEVACIZUMAB [Suspect]
     Indication: MACULAR DEGENERATION
     Dosage: 1.25 MG, UNK
     Route: 031
     Dates: start: 20070801
  2. VISUDYNE [Suspect]
     Indication: MACULAR DEGENERATION
     Route: 031
     Dates: start: 20070611
  3. DEXAMETHASONE TAB [Suspect]
     Indication: MACULAR DEGENERATION
     Route: 031
     Dates: start: 20070611
  4. LIDOCAINE [Concomitant]
     Indication: PREMEDICATION
     Route: 061
  5. PROVIODINE [Concomitant]
     Indication: PREMEDICATION
     Dosage: 10 %, UNK
  6. VIGAMOX [Concomitant]
     Indication: PROPHYLAXIS

REACTIONS (1)
  - IRIDOCYCLITIS [None]
